FAERS Safety Report 9210611 (Version 1)
Quarter: 2013Q2

REPORT INFORMATION
  Report Type: Spontaneous
  Country: US (occurrence: US)
  Receive Date: 20130404
  Receipt Date: 20130404
  Transmission Date: 20140414
  Serious: No
  Sender: FDA-Public Use
  Company Number: US-ASTRAZENECA-2013SE19086

PATIENT
  Age: 65 Year
  Sex: Female
  Weight: 73.5 kg

DRUGS (7)
  1. ATENOLOL [Suspect]
     Indication: CARDIAC DISORDER
     Route: 048
     Dates: start: 201206
  2. ATACAND [Suspect]
     Indication: HYPERTENSION
     Route: 048
  3. ATACAND [Suspect]
     Indication: HYPERTENSION
     Route: 048
  4. NEXIUM [Suspect]
     Indication: GASTROOESOPHAGEAL REFLUX DISEASE
     Route: 048
  5. CRESTOR [Suspect]
     Indication: BLOOD CHOLESTEROL ABNORMAL
     Route: 048
  6. PLAVIX [Concomitant]
  7. PANTAPRAZOLE [Concomitant]

REACTIONS (2)
  - Blood pressure systolic increased [Unknown]
  - Gastrooesophageal reflux disease [Unknown]
